FAERS Safety Report 18076316 (Version 1)
Quarter: 2020Q3

REPORT INFORMATION
  Report Type: Spontaneous
  Country: US (occurrence: US)
  Receive Date: 20200727
  Receipt Date: 20200727
  Transmission Date: 20201103
  Serious: No
  Sender: FDA-Public Use
  Company Number: US-ABBVIE-20K-163-3475249-00

PATIENT
  Sex: Male

DRUGS (10)
  1. LEVOTHYROXINE. [Suspect]
     Active Substance: LEVOTHYROXINE
     Dosage: 1TABLET 4 TIMES A WEEK AND 1.5 TABLETS THE OTHER 3 DAYS
     Route: 048
     Dates: start: 1990
  2. PROPRANOLOL [Concomitant]
     Active Substance: PROPRANOLOL HYDROCHLORIDE
     Indication: HYPERTENSION
  3. TAMSULOSIN [Concomitant]
     Active Substance: TAMSULOSIN
     Indication: PROSTATOMEGALY
  4. SYNTHROID [Suspect]
     Active Substance: LEVOTHYROXINE SODIUM
     Dosage: 1TABLET 4 TIMES A WEEK AND 1.5 TABLETS THE OTHER 3 DAYS
     Route: 050
  5. LEVOTHYROXINE. [Suspect]
     Active Substance: LEVOTHYROXINE
     Indication: HYPOTHYROIDISM
     Dosage: 1TABLET 4 TIMES A WEEK AND 1.5 TABLETS THE OTHER 3 DAYS
     Route: 048
     Dates: start: 1990, end: 1990
  6. FINASTERIDE. [Concomitant]
     Active Substance: FINASTERIDE
     Indication: PROSTATOMEGALY
  7. LISINOPRIL. [Concomitant]
     Active Substance: LISINOPRIL
     Indication: HYPERTENSION
  8. AMLODIPINE [Concomitant]
     Active Substance: AMLODIPINE BESYLATE
     Indication: PRODUCT USED FOR UNKNOWN INDICATION
  9. MAG?OX [Concomitant]
     Active Substance: MAGNESIUM OXIDE
     Indication: PRODUCT USED FOR UNKNOWN INDICATION
  10. SYNTHROID [Suspect]
     Active Substance: LEVOTHYROXINE SODIUM
     Indication: HYPOTHYROIDISM
     Dosage: 1TABLET 4 TIMES A WEEK AND 1.5 TABLETS THE OTHER 3 DAYS
     Route: 050
     Dates: end: 1990

REACTIONS (3)
  - Asthenia [Recovered/Resolved]
  - Blood thyroid stimulating hormone abnormal [Recovered/Resolved]
  - Drug ineffective [Recovered/Resolved]

NARRATIVE: CASE EVENT DATE: 2018
